FAERS Safety Report 6078431-6 (Version None)
Quarter: 2009Q1

REPORT INFORMATION
  Report Type: 
  Country: None (occurrence: None)
  Receive Date: 20090212
  Receipt Date: 20090129
  Transmission Date: 20090719
  Serious: Yes (Hospitalization)
  Sender: FDA-Public Use
  Company Number: 20090038

PATIENT
  Age: 37 Year
  Sex: Female

DRUGS (1)
  1. DEXFERRUM [Suspect]
     Indication: IRON DEFICIENCY ANAEMIA
     Dosage: INTRAVENOUS
     Route: 042

REACTIONS (4)
  - ANAPHYLACTIC REACTION [None]
  - HYPOTENSION [None]
  - LEFT VENTRICULAR DYSFUNCTION [None]
  - MYOCARDIAL INFARCTION [None]
